FAERS Safety Report 5061140-X (Version None)
Quarter: 2006Q3

REPORT INFORMATION
  Report Type: 
  Country: None (occurrence: None)
  Receive Date: 20060720
  Receipt Date: 20060720
  Transmission Date: 20061208
  Serious: Yes (Hospitalization)
  Sender: FDA-Public Use
  Company Number: None

PATIENT
  Sex: Male
  Weight: 72 kg

DRUGS (3)
  1. FLUOROURACIL [Suspect]
     Dosage: 600 MG/M2 IU QD
     Dates: start: 20060709, end: 20060714
  2. HYDREA [Suspect]
     Dosage: 500 MG PO BID
     Route: 048
     Dates: start: 20060709, end: 20060714
  3. IRESSA [Suspect]
     Dosage: 500MG PO QD
     Route: 048
     Dates: start: 20060626

REACTIONS (2)
  - INFECTION [None]
  - PYREXIA [None]
